FAERS Safety Report 6385829-5 (Version None)
Quarter: 2009Q3

REPORT INFORMATION
  Report Type: 
  Country: None (occurrence: None)
  Receive Date: 20090929
  Receipt Date: 20090723
  Transmission Date: 20100115
  Serious: Yes (Hospitalization, Other)
  Sender: FDA-Public Use
  Company Number: LMI-2009-00185

PATIENT
  Age: 27 Year
  Sex: Female
  Weight: 127.0072 kg

DRUGS (5)
  1. DEFINITY [Suspect]
     Indication: CARDIAC FAILURE CONGESTIVE
     Dosage: 1.5 ML OF DEFINITY DILUTED IN 30 ML OF NORMAL SALINE, INTRAVENOUS BOLUS
     Route: 040
     Dates: start: 20090723, end: 20090723
  2. DEFINITY [Suspect]
     Indication: COR PULMONALE CHRONIC
     Dosage: 1.5 ML OF DEFINITY DILUTED IN 30 ML OF NORMAL SALINE, INTRAVENOUS BOLUS
     Route: 040
     Dates: start: 20090723, end: 20090723
  3. DEFINITY [Suspect]
     Indication: ECHOCARDIOGRAM
     Dosage: 1.5 ML OF DEFINITY DILUTED IN 30 ML OF NORMAL SALINE, INTRAVENOUS BOLUS
     Route: 040
     Dates: start: 20090723, end: 20090723
  4. ALEVE [Concomitant]
  5. HYDROCHLOROTHIAZIDE [Concomitant]

REACTIONS (3)
  - BLOOD PRESSURE INCREASED [None]
  - SUPRAVENTRICULAR TACHYCARDIA [None]
  - SYNCOPE [None]
